FAERS Safety Report 5494192-3 (Version None)
Quarter: 2007Q4

REPORT INFORMATION
  Report Type: 
  Country: None (occurrence: None)
  Receive Date: 20071024
  Receipt Date: 20071011
  Transmission Date: 20080405
  Serious: Yes (Other)
  Sender: FDA-Public Use
  Company Number: PHFR2007GB03010

PATIENT

DRUGS (1)
  1. SANDOSTATIN [Suspect]
     Indication: FISTULA
     Dosage: 600MG OVER 24HOURS
     Dates: start: 20071009

REACTIONS (2)
  - ABNORMAL DREAMS [None]
  - HALLUCINATION [None]
